FAERS Safety Report 24289324 (Version 1)
Quarter: 2024Q3

REPORT INFORMATION
  Report Type: Spontaneous
  Country: NL (occurrence: NL)
  Receive Date: 20240906
  Receipt Date: 20240906
  Transmission Date: 20241017
  Serious: Yes (Other)
  Sender: AUROBINDO
  Company Number: NL-ABBVIE-5856456

PATIENT
  Sex: Female

DRUGS (11)
  1. OXYCODONE [Suspect]
     Active Substance: OXYCODONE
     Indication: Pain in extremity
     Route: 065
  2. CARBIDOPA\LEVODOPA [Suspect]
     Active Substance: CARBIDOPA\LEVODOPA
     Indication: Parkinson^s disease
     Dosage: UNK(MD: 6.5 ML, CD: 2.4 ML/H, ED: 1.50ML, REMAINS AT 16 HOURS)
     Route: 065
     Dates: start: 20240815
  3. CARBIDOPA\LEVODOPA [Suspect]
     Active Substance: CARBIDOPA\LEVODOPA
     Dosage: UNK(MD: 6.5 ML; ED: 1.00ML, REMAINS AT 16 HOURS)
     Route: 065
     Dates: start: 20240215, end: 20240410
  4. CARBIDOPA\LEVODOPA [Suspect]
     Active Substance: CARBIDOPA\LEVODOPA
     Dosage: UNK(REMAINS AT 16 HOURS)
     Route: 065
     Dates: start: 20231218
  5. CARBIDOPA\LEVODOPA [Suspect]
     Active Substance: CARBIDOPA\LEVODOPA
     Dosage: UNK(MD: 6.5 ML, CD: 2.4 ML/H, ED: 1.50ML, REMAINS AT 16 HOURS)
     Route: 065
     Dates: start: 20240729, end: 20240815
  6. CARBIDOPA\LEVODOPA [Suspect]
     Active Substance: CARBIDOPA\LEVODOPA
     Dosage: UNK(MD: 6.5 ML, CD: 2.1 ML/H, ED: 1.50ML, REMAINS AT 16 HOURS)
     Dates: start: 20240410, end: 20240619
  7. CARBIDOPA\LEVODOPA [Suspect]
     Active Substance: CARBIDOPA\LEVODOPA
     Dosage: UNK(MD: 6.5 ML, CD: 2.2 ML/H, ED: 1.50ML, REMAINS AT 16 HOURS)
     Route: 065
     Dates: start: 20240619, end: 20240722
  8. CARBIDOPA\LEVODOPA [Suspect]
     Active Substance: CARBIDOPA\LEVODOPA
     Dosage: UNK(MD: 6.5 ML, CD: 2.4 ML/H, ED: 1.50ML, REMAINS AT 16 HOURS, DOSE INCREASED)
     Route: 065
     Dates: start: 20240722, end: 20240729
  9. BENSERAZIDE HYDROCHLORIDE\LEVODOPA [Concomitant]
     Active Substance: BENSERAZIDE HYDROCHLORIDE\LEVODOPA
     Indication: Product used for unknown indication
     Dosage: UNK
     Route: 048
     Dates: start: 20201109, end: 20231218
  10. CORTISONE [Concomitant]
     Active Substance: CORTISONE
     Indication: Arthralgia
     Dosage: UNK
     Route: 065
  11. CARBIDOPA AND LEVODOPA [Concomitant]
     Active Substance: CARBIDOPA\LEVODOPA
     Indication: Parkinson^s disease
     Dosage: 2 DOSAGE FORM(FORM STRENGTH: 125 UNIT)
     Route: 048
     Dates: start: 20200907

REACTIONS (28)
  - Neuropathy peripheral [Not Recovered/Not Resolved]
  - Arthralgia [Not Recovered/Not Resolved]
  - Asthenia [Not Recovered/Not Resolved]
  - Balance disorder [Not Recovered/Not Resolved]
  - Dysstasia [Not Recovered/Not Resolved]
  - Dyskinesia [Not Recovered/Not Resolved]
  - Dyspnoea [Not Recovered/Not Resolved]
  - Frequent bowel movements [Not Recovered/Not Resolved]
  - Freezing phenomenon [Not Recovered/Not Resolved]
  - Fatigue [Not Recovered/Not Resolved]
  - Hypophagia [Not Recovered/Not Resolved]
  - Hyperkinesia [Not Recovered/Not Resolved]
  - Musculoskeletal stiffness [Not Recovered/Not Resolved]
  - Musculoskeletal disorder [Not Recovered/Not Resolved]
  - Mobility decreased [Not Recovered/Not Resolved]
  - Pain in extremity [Not Recovered/Not Resolved]
  - Inflammation [Not Recovered/Not Resolved]
  - Irritable bowel syndrome [Not Recovered/Not Resolved]
  - On and off phenomenon [Not Recovered/Not Resolved]
  - Somnolence [Not Recovered/Not Resolved]
  - Tooth extraction [Not Recovered/Not Resolved]
  - Temperature intolerance [Not Recovered/Not Resolved]
  - Thirst [Not Recovered/Not Resolved]
  - Tension [Not Recovered/Not Resolved]
  - Unevaluable event [Not Recovered/Not Resolved]
  - Therapeutic product effect incomplete [Not Recovered/Not Resolved]
  - Device issue [Not Recovered/Not Resolved]
  - Fall [Recovered/Resolved with Sequelae]

NARRATIVE: CASE EVENT DATE: 20240801
